FAERS Safety Report 7750783-8 (Version None)
Quarter: 2011Q3

REPORT INFORMATION
  Report Type: 
  Country: None (occurrence: None)
  Receive Date: 20110914
  Receipt Date: 20110907
  Transmission Date: 20111222
  Serious: Yes (Other)
  Sender: FDA-Public Use
  Company Number: US-ASTRAZENECA-2010SE28658

PATIENT
  Age: 58 Year
  Sex: Male

DRUGS (1)
  1. NEXIUM [Suspect]
     Route: 048

REACTIONS (6)
  - PNEUMONIA PRIMARY ATYPICAL [None]
  - COMPLICATIONS OF TRANSPLANTED LIVER [None]
  - RENAL DISORDER [None]
  - HEPATIC NEOPLASM MALIGNANT [None]
  - PYREXIA [None]
  - NEOPLASM MALIGNANT [None]
